FAERS Safety Report 11022768 (Version 2)
Quarter: 2016Q2

REPORT INFORMATION
  Report Type: Spontaneous
  Country: FR (occurrence: FR)
  Receive Date: 20150413
  Receipt Date: 20160421
  Transmission Date: 20160815
  Serious: Yes (Life-Threatening, Hospitalization, Other)
  Sender: FDA-Public Use
  Company Number: FR-ABBVIE-15K-056-1374519-00

PATIENT
  Age: 23 Year
  Sex: Female
  Weight: 55 kg

DRUGS (2)
  1. HUMIRA [Suspect]
     Active Substance: ADALIMUMAB
     Indication: ANKYLOSING SPONDYLITIS
     Route: 065
     Dates: start: 201406, end: 201503
  2. CELEBREX [Concomitant]
     Active Substance: CELECOXIB
     Indication: ANKYLOSING SPONDYLITIS
     Route: 048
     Dates: start: 20111205, end: 20150306

REACTIONS (6)
  - Injection site pain [Unknown]
  - Diffuse large B-cell lymphoma stage II [Not Recovered/Not Resolved]
  - Decreased appetite [Unknown]
  - Tonsillitis [Unknown]
  - Weight decreased [Unknown]
  - Ovarian cyst [Unknown]

NARRATIVE: CASE EVENT DATE: 201406
